FAERS Safety Report 15623479 (Version 1)
Quarter: 2018Q4

REPORT INFORMATION
  Report Type: Spontaneous
  Country: NO (occurrence: NO)
  Receive Date: 20181115
  Receipt Date: 20181115
  Transmission Date: 20190205
  Serious: Yes (Other)
  Sender: FDA-Public Use
  Company Number: NO-ALLERGAN-1853499US

PATIENT
  Age: 18 Year
  Sex: Male
  Weight: 95 kg

DRUGS (2)
  1. ESCITALOPRAM OXALATE - BP [Suspect]
     Active Substance: ESCITALOPRAM OXALATE
     Indication: ANXIETY
     Dosage: 20 MG, QD
     Dates: start: 201502, end: 20181022
  2. ESCITALOPRAM OXALATE - BP [Suspect]
     Active Substance: ESCITALOPRAM OXALATE
     Indication: PANIC DISORDER

REACTIONS (14)
  - Headache [Unknown]
  - Panic attack [Unknown]
  - Ventricular extrasystoles [Unknown]
  - Insomnia [Unknown]
  - Dyspepsia [Recovered/Resolved with Sequelae]
  - Tic [Unknown]
  - Muscle spasms [Unknown]
  - Anxiety [Unknown]
  - Asthenia [Unknown]
  - Hypersensitivity [Unknown]
  - Dyspepsia [Unknown]
  - Myalgia [Unknown]
  - Palpitations [Unknown]
  - Nausea [Unknown]

NARRATIVE: CASE EVENT DATE: 2015
